FAERS Safety Report 5824322-2 (Version None)
Quarter: 2008Q3

REPORT INFORMATION
  Report Type: 
  Country: None (occurrence: None)
  Receive Date: 20080728
  Receipt Date: 20080721
  Transmission Date: 20090109
  Serious: Yes (Other)
  Sender: FDA-Public Use
  Company Number: US-KINGPHARMUSA00001-K200800522

PATIENT

DRUGS (11)
  1. ALTACE [Suspect]
     Indication: HYPERTENSION
     Route: 048
  2. TAXOTERE [Suspect]
     Indication: BREAST CANCER FEMALE
     Dosage: 100 MG/M2, UNK
     Route: 042
     Dates: start: 20060914, end: 20061026
  3. KARDEGIC                           /00002703/ [Suspect]
     Route: 048
  4. FLUOROURACIL [Suspect]
     Indication: BREAST CANCER FEMALE
     Route: 042
     Dates: start: 20060713, end: 20060824
  5. EPIRUBICIN [Suspect]
     Indication: BREAST CANCER FEMALE
     Route: 042
     Dates: start: 20060713, end: 20060824
  6. CYCLOPHOSPHAMIDE [Suspect]
     Indication: BREAST CANCER FEMALE
     Dosage: UNK, UNK
     Route: 042
     Dates: start: 20060713, end: 20060824
  7. HERCEPTIN [Suspect]
     Indication: BREAST CANCER FEMALE
     Dosage: 8 MCG/KG, UNK
     Route: 042
     Dates: start: 20060915, end: 20060915
  8. HERCEPTIN [Suspect]
     Dosage: 6 MCG/KG, UNK
     Route: 042
     Dates: start: 20061005, end: 20061026
  9. BISOPROLOL FUMARATE [Suspect]
     Indication: PALPITATIONS
     Route: 048
  10. LEVOTHYROXINE SODIUM [Concomitant]
  11. SECTRAL [Concomitant]
     Indication: PALPITATIONS

REACTIONS (1)
  - EJECTION FRACTION DECREASED [None]
